FAERS Safety Report 14088478 (Version 4)
Quarter: 2024Q1

REPORT INFORMATION
  Report Type: Spontaneous
  Country: DE (occurrence: DE)
  Receive Date: 20171013
  Receipt Date: 20240327
  Transmission Date: 20240409
  Serious: Yes (Hospitalization)
  Sender: FDA-Public Use
  Company Number: None

PATIENT
  Age: 5 Year
  Sex: Male
  Weight: 34 kg

DRUGS (11)
  1. TOPIRAMATE [Suspect]
     Active Substance: TOPIRAMATE
     Indication: Epilepsy
     Dosage: DAILY DOSE: 240 MG MILLIGRAM(S) EVERY DAY
     Route: 048
  2. VALPROATE [Suspect]
     Active Substance: VALPROIC ACID
     Indication: Epilepsy
     Dosage: DAILY DOSE: 1075 MG MILLIGRAM(S) EVERY DAY
     Route: 048
  3. VALPROATE [Suspect]
     Active Substance: VALPROIC ACID
     Dosage: DAILY DOSE: 825 MG MILLIGRAM(S) EVERY DAY
     Route: 048
  4. CLOBAZAM [Suspect]
     Active Substance: CLOBAZAM
     Indication: Epilepsy
     Dosage: DOSAGE FORM: UNSPECIFIED, 3-0-8
     Route: 048
  5. CLOBAZAM [Suspect]
     Active Substance: CLOBAZAM
     Route: 048
  6. CLOBAZAM [Suspect]
     Active Substance: CLOBAZAM
     Route: 048
  7. SULTHIAME [Suspect]
     Active Substance: SULTHIAME
     Indication: Epilepsy
     Route: 048
  8. ALBUTEROL [Suspect]
     Active Substance: ALBUTEROL
     Indication: Epilepsy
     Route: 065
  9. MELATONIN [Concomitant]
     Active Substance: MELATONIN
     Indication: Product used for unknown indication
     Route: 065
  10. HYDROCORTISONE [Concomitant]
     Active Substance: HYDROCORTISONE
     Indication: Product used for unknown indication
     Dosage: 5-2.5-2.5
     Route: 065
  11. LEVOTHYROXINE SODIUM [Concomitant]
     Active Substance: LEVOTHYROXINE SODIUM
     Indication: Product used for unknown indication
     Route: 065

REACTIONS (4)
  - Drug intolerance [Unknown]
  - Bronchitis [Recovering/Resolving]
  - Epilepsy [Recovered/Resolved]
  - Disturbance in attention [Recovered/Resolved]

NARRATIVE: CASE EVENT DATE: 20160703
